FAERS Safety Report 9887655 (Version 1)
Quarter: 2014Q1

REPORT INFORMATION
  Report Type: Spontaneous
  Country: DK (occurrence: DK)
  Receive Date: 20140211
  Receipt Date: 20140211
  Transmission Date: 20141002
  Serious: Yes (Other)
  Sender: FDA-Public Use
  Company Number: DK-JNJFOC-20140203009

PATIENT
  Age: 22 Year
  Sex: Female

DRUGS (3)
  1. TOPIRAMATE [Suspect]
     Indication: JUVENILE MYOCLONIC EPILEPSY
     Route: 048
  2. LEVETIRACETAM [Suspect]
     Indication: JUVENILE MYOCLONIC EPILEPSY
     Route: 065
  3. ETHOSUXIMIDE [Suspect]
     Indication: JUVENILE MYOCLONIC EPILEPSY
     Route: 065

REACTIONS (1)
  - Epilepsy [Unknown]
